FAERS Safety Report 7497190-3 (Version None)
Quarter: 2011Q2

REPORT INFORMATION
  Report Type: 
  Country: None (occurrence: None)
  Receive Date: 20110523
  Receipt Date: 20110107
  Transmission Date: 20111010
  Serious: No
  Sender: FDA-Public Use
  Company Number: US-NOVEN-11US001580

PATIENT
  Age: 20 Year
  Sex: Female

DRUGS (1)
  1. DAYTRANA [Suspect]
     Indication: PRODUCT USED FOR UNKNOWN INDICATION
     Dosage: 1 PATCH DAILY FOR 9 HOURS
     Route: 062
     Dates: end: 20110107

REACTIONS (2)
  - OFF LABEL USE [None]
  - BLISTER [None]
